FAERS Safety Report 8774398 (Version 1)
Quarter: 2012Q4

REPORT INFORMATION
  Report Type: 
  Country: US (occurrence: US)
  Receive Date: 20120907
  Receipt Date: 20120907
  Transmission Date: 20130627
  Serious: No
  Sender: FDA-Public Use
  Company Number: US-VERTEX PHARMACEUTICAL INC.-2012-020229

PATIENT

DRUGS (11)
  1. VX-950 [Suspect]
     Indication: HEPATITIS C
     Dosage: 750 mg, tid
  2. PEGINTRON                          /01543001/ [Concomitant]
     Indication: HEPATITIS C
     Dosage: 150 ?g, UNK
  3. RIBAVIRIN [Concomitant]
     Indication: HEPATITIS C
     Dosage: UNK
  4. CIPROFLOXACIN [Concomitant]
     Dosage: 500 mg, UNK
  5. MILK OF MAGNESIA [Concomitant]
  6. IBUPROFEN [Concomitant]
     Dosage: 600 mg, UNK
  7. BROMFED DM [Concomitant]
  8. ALBUTEROL                          /00139501/ [Concomitant]
     Dosage: UNK
  9. ALKA-SELTZER                       /00002701/ [Concomitant]
     Dosage: UNK, qd
  10. AMITIZA [Concomitant]
     Dosage: 8 ?g, UNK
  11. HYDROCODONE/APAP [Concomitant]
     Dosage: 327.5 mg, UNK

REACTIONS (8)
  - Pneumonia [Unknown]
  - Throat lesion [Unknown]
  - Headache [Unknown]
  - Ear infection [Unknown]
  - Eye irritation [Unknown]
  - Infection susceptibility increased [Unknown]
  - Pain [Unknown]
  - Platelet count decreased [Unknown]
